FAERS Safety Report 8988354 (Version 1)
Quarter: 2012Q4

REPORT INFORMATION
  Report Type: Spontaneous
  Country: IT (occurrence: None)
  Receive Date: 20121218
  Receipt Date: 20121218
  Transmission Date: 20130627
  Serious: Yes (Hospitalization)
  Sender: FDA-Public Use
  Company Number: INT_00169_2012

PATIENT
  Sex: Female

DRUGS (3)
  1. CEFTRIAXONE [Suspect]
     Route: 030
     Dates: start: 20120705, end: 20120711
  2. NAPROXEN (NAPROXEN) [Suspect]
  3. LEVOFLOXACIN (LEVOFLOXACIN) [Suspect]

REACTIONS (2)
  - Urticaria [None]
  - Hepatocellular injury [None]
